FAERS Safety Report 12525508 (Version 1)
Quarter: 2016Q3

REPORT INFORMATION
  Report Type: Spontaneous
  Country: KR (occurrence: KR)
  Receive Date: 20160704
  Receipt Date: 20160704
  Transmission Date: 20161109
  Serious: Yes (Death, Other)
  Sender: FDA-Public Use
  Company Number: PHHY2015KR175946

PATIENT

DRUGS (2)
  1. AFINITOR [Suspect]
     Active Substance: EVEROLIMUS
     Indication: PRODUCT USED FOR UNKNOWN INDICATION
     Dosage: UNK
     Route: 065
     Dates: start: 20130416
  2. FEMARA [Suspect]
     Active Substance: LETROZOLE
     Indication: PRODUCT USED FOR UNKNOWN INDICATION
     Dosage: UNK
     Route: 065

REACTIONS (7)
  - Metastases to spleen [Unknown]
  - Metastases to urinary tract [Unknown]
  - Metastases to bone [Unknown]
  - Blood glucose increased [Unknown]
  - Death [Fatal]
  - Metastases to peritoneum [Unknown]
  - Metastases to liver [Unknown]

NARRATIVE: CASE EVENT DATE: 20130430
